FAERS Safety Report 17897354 (Version 4)
Quarter: 2020Q2

REPORT INFORMATION
  Report Type: Spontaneous
  Country: US (occurrence: US)
  Receive Date: 20200615
  Receipt Date: 20200619
  Transmission Date: 20200714
  Serious: Yes (Hospitalization, Other)
  Sender: FDA-Public Use
  Company Number: US-CELGENEUS-USA-20200603047

PATIENT
  Age: 75 Year
  Sex: Male

DRUGS (3)
  1. DAUISMO [Concomitant]
     Indication: 5Q MINUS SYNDROME
     Route: 065
  2. CYTARABINE. [Concomitant]
     Active Substance: CYTARABINE
     Indication: 5Q MINUS SYNDROME
     Route: 065
  3. VIDAZA [Suspect]
     Active Substance: AZACITIDINE
     Indication: 5Q MINUS SYNDROME
     Route: 065
     Dates: start: 201702

REACTIONS (8)
  - Haemoglobin decreased [Unknown]
  - White blood cell count decreased [Unknown]
  - Platelet count decreased [Unknown]
  - Gastrointestinal haemorrhage [Unknown]
  - Full blood count decreased [Unknown]
  - Staphylococcal infection [Unknown]
  - Drug intolerance [Unknown]
  - Asthenia [Unknown]
